FAERS Safety Report 24570846 (Version 1)
Quarter: 2024Q4

REPORT INFORMATION
  Report Type: Report from Study
  Country: TW (occurrence: TW)
  Receive Date: 20241101
  Receipt Date: 20241101
  Transmission Date: 20250115
  Serious: Yes (Death, Other)
  Sender: ALEXION PHARMACEUTICALS
  Company Number: TW-AstraZeneca-CH-00728630A

PATIENT

DRUGS (4)
  1. DURVALUMAB [Suspect]
     Active Substance: DURVALUMAB
     Dosage: ,FREQUENCY:MONTHLY
  2. DURVALUMAB [Suspect]
     Active Substance: DURVALUMAB
     Dosage: ,FREQUENCY:MONTHLY
  3. DURVALUMAB [Suspect]
     Active Substance: DURVALUMAB
     Dosage: ,FREQUENCY:MONTHLY
  4. DURVALUMAB [Suspect]
     Active Substance: DURVALUMAB
     Dosage: ,FREQUENCY:MONTHLY

REACTIONS (1)
  - Immunodeficiency [Fatal]
